FAERS Safety Report 9521973 (Version 2)
Quarter: 2013Q4

REPORT INFORMATION
  Report Type: Spontaneous
  Country: US (occurrence: US)
  Receive Date: 20130913
  Receipt Date: 20131015
  Transmission Date: 20140711
  Serious: Yes (Other)
  Sender: FDA-Public Use
  Company Number: US-JNJFOC-20130902709

PATIENT
  Age: 50 Year
  Sex: Female
  Weight: 74.84 kg

DRUGS (10)
  1. STELARA [Suspect]
     Indication: PSORIASIS
     Route: 058
     Dates: start: 20101029, end: 20130528
  2. CLOBETASOL [Concomitant]
     Indication: PRODUCT USED FOR UNKNOWN INDICATION
     Dosage: AS NEEDED (SINCE 5 YEARS)
     Route: 061
  3. CLOBEX [Concomitant]
     Indication: PRODUCT USED FOR UNKNOWN INDICATION
     Route: 061
  4. CYCLOBENZAPRINE [Concomitant]
     Indication: PRODUCT USED FOR UNKNOWN INDICATION
     Route: 065
  5. GABAPENTIN [Concomitant]
     Indication: PSORIATIC ARTHROPATHY
     Route: 065
  6. KETOROLAC [Concomitant]
     Indication: PSORIATIC ARTHROPATHY
     Route: 065
  7. MELOXICAM [Concomitant]
     Indication: PSORIATIC ARTHROPATHY
     Route: 065
  8. ZYLOPRIM [Concomitant]
     Indication: PSORIATIC ARTHROPATHY
     Route: 065
  9. HYDROXYUREA [Concomitant]
     Indication: PRODUCT USED FOR UNKNOWN INDICATION
     Dosage: ON 1990
  10. TRAMADOL [Concomitant]
     Indication: PSORIATIC ARTHROPATHY
     Route: 065

REACTIONS (2)
  - Breast cancer metastatic [Unknown]
  - Recurrent cancer [Recovering/Resolving]
